FAERS Safety Report 20504307 (Version 1)
Quarter: 2022Q1

REPORT INFORMATION
  Report Type: Spontaneous
  Country: US (occurrence: US)
  Receive Date: 20220222
  Receipt Date: 20220222
  Transmission Date: 20220423
  Serious: Yes (Other)
  Sender: FDA-Public Use
  Company Number: US-ALVOGEN-2022-ALVOGEN-118336

PATIENT
  Age: 31 Year
  Sex: Male

DRUGS (8)
  1. VORICONAZOLE [Suspect]
     Active Substance: VORICONAZOLE
     Indication: Acanthamoeba keratitis
  2. OFLOXACIN [Suspect]
     Active Substance: OFLOXACIN
     Indication: Acanthamoeba keratitis
     Dosage: EVERY 2 HOUR
  3. MILTEFOSINE [Suspect]
     Active Substance: MILTEFOSINE
     Indication: Acanthamoeba keratitis
  4. PROPAMIDINE [Suspect]
     Active Substance: PROPAMIDINE
     Indication: Acanthamoeba keratitis
  5. BACITRACIN\NEOMYCIN\POLYMYXIN B SULFATE [Suspect]
     Active Substance: BACITRACIN\NEOMYCIN\POLYMYXIN B SULFATE
     Indication: Acanthamoeba keratitis
     Dosage: 3.5 MG/10,000 UNITS AT BEDTIME
  6. DEXAMETHASONE\NEOMYCIN\POLYMYXIN B [Suspect]
     Active Substance: DEXAMETHASONE\NEOMYCIN\POLYMYXIN B
     Indication: Acanthamoeba keratitis
     Dosage: 3.5 MG/10,000 UNITS/0.1%
  7. CHLORHEXIDINE [Concomitant]
     Active Substance: CHLORHEXIDINE
     Indication: Acanthamoeba keratitis
  8. POLIHEXANIDE [Concomitant]
     Active Substance: POLIHEXANIDE
     Indication: Acanthamoeba keratitis

REACTIONS (5)
  - Drug ineffective [Unknown]
  - Abdominal discomfort [Unknown]
  - Condition aggravated [Recovered/Resolved]
  - Drug intolerance [Unknown]
  - Treatment noncompliance [Unknown]
